FAERS Safety Report 6398468-7 (Version None)
Quarter: 2009Q4

REPORT INFORMATION
  Report Type: 
  Country: None (occurrence: None)
  Receive Date: 20091013
  Receipt Date: 20091009
  Transmission Date: 20100525
  Serious: Yes (Hospitalization)
  Sender: FDA-Public Use
  Company Number: A0811068A

PATIENT
  Age: 66 Year
  Sex: Female

DRUGS (16)
  1. ADVAIR DISKUS 100/50 [Suspect]
     Indication: CHRONIC OBSTRUCTIVE PULMONARY DISEASE
     Dosage: 1PUFF TWICE PER DAY
     Route: 055
  2. ALBUTEROL [Concomitant]
  3. ATENOLOL [Concomitant]
  4. FLUOXETINE HCL [Concomitant]
  5. FUROSEMIDE [Concomitant]
  6. SPIRONOLACTONE [Concomitant]
  7. METFORMIN HYDROCHLORIDE [Concomitant]
  8. SIMVASTATIN [Concomitant]
  9. LISINOPRIL [Concomitant]
  10. NOVOLIN N [Concomitant]
  11. ALBUTEROL SULFATE AUTOHALER [Concomitant]
  12. WARFARIN SODIUM [Concomitant]
  13. NYSTATIN [Concomitant]
  14. NOVOLIN R [Concomitant]
  15. VITAMIN [Concomitant]
  16. FISH OIL [Concomitant]

REACTIONS (5)
  - CANDIDIASIS [None]
  - COUGH [None]
  - FOREIGN BODY [None]
  - PNEUMONIA [None]
  - THROAT IRRITATION [None]
